FAERS Safety Report 8543952-0 (Version None)
Quarter: 2012Q3

REPORT INFORMATION
  Report Type: 
  Country: None (occurrence: None)
  Receive Date: 20120717
  Receipt Date: 20120702
  Transmission Date: 20120928
  Serious: Yes (Death)
  Sender: FDA-Public Use
  Company Number: 2012-345

PATIENT
  Age: 64 Year
  Sex: Male

DRUGS (16)
  1. ABILIFY [Concomitant]
  2. DETROL LA [Concomitant]
  3. TAMSULOSIN HCL [Concomitant]
  4. METOPROLOL ER (METOPROLOL TARTRATE) [Concomitant]
  5. CRESTOR [Concomitant]
  6. SENNA-S (DOCUSATE SODIUM, SENNOSIDE A+B) [Concomitant]
  7. TRICOR [Concomitant]
  8. FAZACLO ODT [Suspect]
     Dosage: 400-800 MG, QD, ORAL
     Route: 048
     Dates: start: 20070807, end: 20120416
  9. DOCUSATE SODIUM [Concomitant]
  10. BENZTROPINE MESYLATE [Concomitant]
  11. ADVAIR HFA [Concomitant]
  12. DIVALPROEX ER (VALPROATE SEMISODIUM) [Concomitant]
  13. GLIPIZIDE [Concomitant]
  14. ACTOPLUS MET (METFORMIN HYDROCHLORIDE, PIOGLITAZONE HYDROCHLORIDE) [Concomitant]
  15. FLUTICASONE FUROATE [Concomitant]
  16. MELOXICAM [Concomitant]

REACTIONS (1)
  - DEATH [None]
